FAERS Safety Report 17172165 (Version 1)
Quarter: 2019Q4

REPORT INFORMATION
  Report Type: Spontaneous
  Country: ES (occurrence: ES)
  Receive Date: 20191219
  Receipt Date: 20191219
  Transmission Date: 20200122
  Serious: Yes (Other)
  Sender: FDA-Public Use
  Company Number: NVSC2019ES073051

PATIENT
  Age: 77 Year
  Sex: Female

DRUGS (2)
  1. DEFEROXAMINE [Suspect]
     Active Substance: DEFEROXAMINE MESYLATE
     Indication: CHELATION THERAPY
     Dosage: 50 MG/KG, QD
     Route: 042
  2. DEFERIPRONE [Suspect]
     Active Substance: DEFERIPRONE
     Indication: CHELATION THERAPY
     Dosage: 1000 MG, TID
     Route: 065

REACTIONS (2)
  - Haemosiderosis [Recovering/Resolving]
  - Drug intolerance [Recovering/Resolving]
